FAERS Safety Report 16816195 (Version 1)
Quarter: 2019Q3

REPORT INFORMATION
  Report Type: Spontaneous
  Country: US (occurrence: US)
  Receive Date: 20190917
  Receipt Date: 20190917
  Transmission Date: 20191005
  Serious: No
  Sender: FDA-Public Use
  Company Number: US-RECKITT BENCKISER HEALTHCARE INT LIMITED-RB-91177-2018

PATIENT
  Age: 74 Year
  Sex: Male

DRUGS (1)
  1. MUCINEX MAXIMUM STRENGTH [Suspect]
     Active Substance: GUAIFENESIN
     Indication: HYPERSENSITIVITY
     Dosage: 2400 MILLIGRAM, SINGLE
     Route: 048
     Dates: start: 20180904

REACTIONS (2)
  - Overdose [Unknown]
  - Expired product administered [Unknown]
